FAERS Safety Report 7835343-2 (Version None)
Quarter: 2011Q4

REPORT INFORMATION
  Report Type: 
  Country: None (occurrence: None)
  Receive Date: 20111024
  Receipt Date: 20111018
  Transmission Date: 20120403
  Serious: Yes (Other)
  Sender: FDA-Public Use
  Company Number: NL-AMGEN-NLDSP2011053933

PATIENT
  Age: 47 Year
  Sex: Female

DRUGS (6)
  1. ZOFRAN [Concomitant]
     Dosage: UNK UNK, PRN
  2. ACETAMINOPHEN [Concomitant]
     Dosage: UNK UNK, PRN
  3. EMEND                              /01627301/ [Concomitant]
  4. NEULASTA [Suspect]
     Indication: CHEMOTHERAPY
     Dosage: 6 MG, UNK
     Route: 058
     Dates: start: 20110928
  5. DEXAMETHASONE [Concomitant]
  6. ANTINEOPLASTIC AGENTS [Concomitant]
     Indication: BREAST CANCER METASTATIC

REACTIONS (2)
  - PALPITATIONS [None]
  - HEART RATE INCREASED [None]
